FAERS Safety Report 9231206 (Version 1)
Quarter: 2013Q2

REPORT INFORMATION
  Report Type: Spontaneous
  Country: GB (occurrence: GB)
  Receive Date: 20130415
  Receipt Date: 20130415
  Transmission Date: 20140414
  Serious: Yes (Life-Threatening)
  Sender: FDA-Public Use
  Company Number: GB-PFIZER INC-2013116922

PATIENT
  Age: 21 Year
  Sex: Male
  Weight: 79 kg

DRUGS (2)
  1. CHAMPIX [Suspect]
     Indication: SMOKING CESSATION THERAPY
     Dosage: 1 MG, 2X/DAY
     Route: 048
     Dates: start: 20130218, end: 20130325
  2. VENLAFAXINE [Concomitant]
     Dosage: UNK

REACTIONS (2)
  - Suicide attempt [Not Recovered/Not Resolved]
  - Depersonalisation [Not Recovered/Not Resolved]
